FAERS Safety Report 8513029-9 (Version None)
Quarter: 2012Q3

REPORT INFORMATION
  Report Type: 
  Country: None (occurrence: None)
  Receive Date: 20120716
  Receipt Date: 20120706
  Transmission Date: 20120928
  Serious: Yes (Other)
  Sender: FDA-Public Use
  Company Number: US-ASTRAZENECA-2012SE37256

PATIENT
  Age: 32 Year
  Sex: Male

DRUGS (5)
  1. OXYCONTIN [Concomitant]
     Route: 048
  2. CAPRELSA [Suspect]
     Indication: THYROID CANCER
     Route: 048
  3. SYNTHROID [Concomitant]
     Route: 048
  4. CAPRELSA [Suspect]
     Indication: THYROID DISORDER
     Route: 048
  5. OXYCONTIN [Concomitant]
     Route: 048

REACTIONS (3)
  - SKIN SENSITISATION [None]
  - ACNE [None]
  - ELECTROCARDIOGRAM QT PROLONGED [None]
